FAERS Safety Report 10172394 (Version 1)
Quarter: 2014Q2

REPORT INFORMATION
  Report Type: Spontaneous
  Country: FR (occurrence: FR)
  Receive Date: 20140515
  Receipt Date: 20140515
  Transmission Date: 20141212
  Serious: Yes (Hospitalization)
  Sender: FDA-Public Use
  Company Number: FR-ASTRAZENECA-2014SE31805

PATIENT
  Age: 52 Year
  Sex: Female

DRUGS (2)
  1. XEROQUEL [Suspect]
     Route: 048
  2. UNSPECIFIED DRUGS [Concomitant]

REACTIONS (1)
  - Pulmonary embolism [Unknown]
